FAERS Safety Report 9667718 (Version 3)
Quarter: 2013Q4

REPORT INFORMATION
  Report Type: Spontaneous
  Country: US (occurrence: US)
  Receive Date: 20131104
  Receipt Date: 20131218
  Transmission Date: 20140711
  Serious: Yes (Other)
  Sender: FDA-Public Use
  Company Number: US-PFIZER INC-2013311053

PATIENT
  Age: 62 Year
  Sex: Male

DRUGS (7)
  1. CHANTIX [Suspect]
     Dosage: UNK
     Dates: start: 20130917, end: 2013
  2. PROZAC [Suspect]
     Dosage: 60 MG, UNK
  3. ALEVE [Concomitant]
     Dosage: UNK
  4. ASA [Concomitant]
     Dosage: UNK
  5. PRO-AIR [Concomitant]
     Dosage: 90 UG, AS NEEDED
     Dates: start: 20121031
  6. ADVAIR DISKUS [Concomitant]
     Dosage: 250/50, TWICE DAILY
     Dates: start: 20121031
  7. IPRATROPIUM BROMIDE [Concomitant]
     Dosage: UNK
     Route: 055

REACTIONS (8)
  - Suicidal behaviour [Unknown]
  - Feeling abnormal [Unknown]
  - Nightmare [Unknown]
  - Depression [Unknown]
  - Anger [Unknown]
  - Aggression [Unknown]
  - Abnormal behaviour [Unknown]
  - Loss of employment [Unknown]
